FAERS Safety Report 5843390-5 (Version None)
Quarter: 2008Q3

REPORT INFORMATION
  Report Type: 
  Country: None (occurrence: None)
  Receive Date: 20080813
  Receipt Date: 20080807
  Transmission Date: 20090109
  Serious: Yes (Other)
  Sender: FDA-Public Use
  Company Number: A0721005A

PATIENT
  Age: 53 Year
  Sex: Female
  Weight: 80.29 kg

DRUGS (2)
  1. LOVAZA [Suspect]
     Indication: BLOOD TRIGLYCERIDES INCREASED
     Dosage: 2G PER DAY
     Route: 048
     Dates: start: 20071107, end: 20080201
  2. MOTRIN [Concomitant]
     Indication: CARPAL TUNNEL SYNDROME

REACTIONS (11)
  - ABNORMAL SENSATION IN EYE [None]
  - CATARACT [None]
  - CORNEAL ABRASION [None]
  - EYE PAIN [None]
  - HEADACHE [None]
  - MIGRAINE [None]
  - PHOTOPSIA [None]
  - TOOTHACHE [None]
  - VISION BLURRED [None]
  - VISUAL IMPAIRMENT [None]
  - VITREOUS DETACHMENT [None]
